FAERS Safety Report 7614149-3 (Version None)
Quarter: 2011Q3

REPORT INFORMATION
  Report Type: 
  Country: None (occurrence: None)
  Receive Date: 20110711
  Receipt Date: 20100914
  Transmission Date: 20111222
  Serious: Yes (Other)
  Sender: FDA-Public Use
  Company Number: DSU-2010-04813

PATIENT
  Sex: Female
  Weight: 79.3795 kg

DRUGS (9)
  1. CO Q10 (UBIDECARENONE, LEVOCARNITINE) (UBIDECARENONE, LEVOCARNITINE) [Concomitant]
  2. BENICAR [Suspect]
     Indication: HYPERTENSION
     Dosage: 20 MG (20 MG, QD), PER ORAL
     Route: 048
     Dates: start: 20100901, end: 20100901
  3. OMEGA-3-ACID ETHYL ESTERS (LOVAZA) [Concomitant]
  4. PROGESTERONE AND ESTROGEN COMPOUND (PROGESTERONE, ESTROGENS CONJUGATED [Concomitant]
  5. AZOR [Suspect]
     Indication: HYPERTENSION
     Dosage: SEE IMAGE
     Route: 048
     Dates: start: 20100101, end: 20100101
  6. AZOR [Suspect]
     Indication: HYPERTENSION
     Dosage: SEE IMAGE
     Route: 048
     Dates: start: 20100901
  7. AZOR [Suspect]
     Indication: HYPERTENSION
     Dosage: SEE IMAGE
     Route: 048
     Dates: start: 20100101, end: 20100901
  8. AZOR [Suspect]
     Indication: HYPERTENSION
     Dosage: SEE IMAGE
     Route: 048
     Dates: start: 20100101, end: 20100101
  9. AMLODIPINE [Suspect]
     Indication: HYPERTENSION
     Dosage: 5 MG (5 MG, QD)
     Dates: start: 20100901

REACTIONS (6)
  - DRUG INEFFECTIVE [None]
  - NO ADVERSE EVENT [None]
  - FLATULENCE [None]
  - PRURITUS [None]
  - DRUG ADMINISTRATION ERROR [None]
  - DIZZINESS [None]
